FAERS Safety Report 5645275-6 (Version None)
Quarter: 2008Q1

REPORT INFORMATION
  Report Type: 
  Country: None (occurrence: None)
  Receive Date: 20080229
  Receipt Date: 20080222
  Transmission Date: 20080703
  Serious: Yes (Other)
  Sender: FDA-Public Use
  Company Number: US-SANOFI-SYNTHELABO-A03200800719

PATIENT
  Age: 76 Year
  Sex: Male

DRUGS (6)
  1. TRENTAL [Concomitant]
     Indication: DRUG USE FOR UNKNOWN INDICATION
     Dosage: UNK
     Route: 048
  2. GLIPIZIDE [Concomitant]
     Indication: DRUG USE FOR UNKNOWN INDICATION
     Dosage: UNK
     Route: 048
  3. METFORMIN HCL [Concomitant]
     Indication: DRUG USE FOR UNKNOWN INDICATION
     Dosage: UNK
     Route: 048
  4. PLAVIX [Suspect]
     Indication: TRANSIENT ISCHAEMIC ATTACK
     Dosage: UNK
     Route: 048
  5. PLAVIX [Suspect]
     Indication: CAROTID ARTERY OCCLUSION
     Dosage: UNK
     Route: 048
  6. ASPIRIN [Suspect]
     Dosage: UNK
     Route: 048

REACTIONS (1)
  - CAROTID ARTERY OCCLUSION [None]
